FAERS Safety Report 7799309-3 (Version None)
Quarter: 2011Q4

REPORT INFORMATION
  Report Type: 
  Country: None (occurrence: None)
  Receive Date: 20111006
  Receipt Date: 20110926
  Transmission Date: 20120403
  Serious: Yes (Other)
  Sender: FDA-Public Use
  Company Number: HR-JNJFOC-20110911596

PATIENT
  Age: 41 Year
  Sex: Female
  Weight: 110 kg

DRUGS (3)
  1. METHOTREXATE [Concomitant]
     Indication: PSORIATIC ARTHROPATHY
  2. FOLIC ACID [Concomitant]
     Indication: PSORIATIC ARTHROPATHY
  3. REMICADE [Suspect]
     Indication: PSORIATIC ARTHROPATHY
     Route: 042
     Dates: start: 20100608, end: 20110921

REACTIONS (6)
  - HYPERSENSITIVITY [None]
  - PRURITUS [None]
  - NAUSEA [None]
  - ERYTHEMA [None]
  - ASPHYXIA [None]
  - INFUSION RELATED REACTION [None]
